FAERS Safety Report 15819536 (Version 1)
Quarter: 2019Q1

REPORT INFORMATION
  Report Type: Spontaneous
  Country: US (occurrence: US)
  Receive Date: 20190114
  Receipt Date: 20190114
  Transmission Date: 20190417
  Serious: No
  Sender: FDA-Public Use
  Company Number: US-BIOGEN-2018BI00670098

PATIENT
  Sex: Female

DRUGS (1)
  1. AVONEX [Suspect]
     Active Substance: INTERFERON BETA-1A
     Indication: MULTIPLE SCLEROSIS
     Dates: start: 19970706

REACTIONS (5)
  - Device malfunction [Unknown]
  - Memory impairment [Unknown]
  - Product dose omission [Unknown]
  - Muscular weakness [Unknown]
  - Essential tremor [Unknown]
